FAERS Safety Report 22541228 (Version 1)
Quarter: 2023Q2

REPORT INFORMATION
  Report Type: Spontaneous
  Country: KR (occurrence: KR)
  Receive Date: 20230609
  Receipt Date: 20230609
  Transmission Date: 20230722
  Serious: Yes (Other)
  Sender: FDA-Public Use
  Company Number: KR-MYLANLABS-2023M1057188

PATIENT
  Age: 60 Year
  Sex: Female

DRUGS (4)
  1. CELEBREX [Suspect]
     Active Substance: CELECOXIB
     Indication: Muscle strain
     Dosage: 200 MILLIGRAM, QD
     Route: 048
     Dates: start: 20181101, end: 20181101
  2. ACETAMINOPHEN [Suspect]
     Active Substance: ACETAMINOPHEN
     Indication: Muscle strain
     Dosage: 500 MILLIGRAM, QD
     Route: 048
     Dates: start: 20181101, end: 20181101
  3. AFLOQUALONE [Suspect]
     Active Substance: AFLOQUALONE
     Indication: Muscle strain
     Dosage: 20 MILLIGRAM, QD
     Route: 048
     Dates: start: 20181101, end: 20181101
  4. RANITIDINE HYDROCHLORIDE [Suspect]
     Active Substance: RANITIDINE HYDROCHLORIDE
     Indication: Muscle strain
     Dosage: 15 MILLIGRAM, QD
     Route: 048
     Dates: start: 20181101, end: 20181101

REACTIONS (6)
  - Conjunctival hyperaemia [Recovered/Resolved]
  - Urticaria [Recovered/Resolved]
  - Pruritus [Recovered/Resolved]
  - Dyspnoea [Recovered/Resolved]
  - Dizziness [Recovered/Resolved]
  - Off label use [Unknown]

NARRATIVE: CASE EVENT DATE: 20181101
